FAERS Safety Report 5378963-X (Version None)
Quarter: 2007Q3

REPORT INFORMATION
  Report Type: 
  Country: None (occurrence: None)
  Receive Date: 20070705
  Receipt Date: 20070625
  Transmission Date: 20080115
  Serious: Yes (Hospitalization)
  Sender: FDA-Public Use
  Company Number: AT-ASTRAZENECA-2007PK01316

PATIENT
  Age: 28126 Day
  Sex: Female
  Weight: 75 kg

DRUGS (6)
  1. ARIMIDEX [Suspect]
     Indication: BREAST CANCER
     Route: 048
     Dates: start: 20041202
  2. NOLVADEX [Suspect]
     Indication: BREAST CANCER
     Route: 048
     Dates: start: 20021220
  3. CITALOPRAM HYDROBROMIDE [Concomitant]
     Route: 048
  4. THYREX [Concomitant]
     Indication: HYPOTHYROIDISM
     Route: 048
  5. SERETIDE [Concomitant]
     Indication: CHRONIC OBSTRUCTIVE PULMONARY DISEASE
     Dosage: TWO INHALATION BID
     Route: 055
  6. PANTOPRAZOLE SODIUM [Concomitant]
     Indication: GASTROOESOPHAGEAL SPHINCTER INSUFFICIENCY
     Route: 048

REACTIONS (1)
  - ENDOMETRIAL DISORDER [None]
